FAERS Safety Report 20343214 (Version 1)
Quarter: 2022Q1

REPORT INFORMATION
  Report Type: Spontaneous
  Country: US (occurrence: US)
  Receive Date: 20220117
  Receipt Date: 20220117
  Transmission Date: 20220423
  Serious: No
  Sender: FDA-Public Use
  Company Number: US-ELI_LILLY_AND_COMPANY-US202201005966

PATIENT
  Age: 63 Year
  Sex: Female

DRUGS (3)
  1. TRULICITY [Suspect]
     Active Substance: DULAGLUTIDE
     Indication: Diabetes mellitus
     Dosage: 1.5 MG, UNKNOWN
     Route: 058
     Dates: start: 202110
  2. JARDIANCE [Concomitant]
     Active Substance: EMPAGLIFLOZIN
     Indication: Product used for unknown indication
  3. LANTUS [Concomitant]
     Active Substance: INSULIN GLARGINE
     Indication: Product used for unknown indication
     Dosage: 25 U, DAILY

REACTIONS (5)
  - Blood glucose increased [Unknown]
  - Injection site swelling [Recovered/Resolved]
  - Injection site pruritus [Unknown]
  - Injection site erythema [Recovered/Resolved]
  - Injection site induration [Unknown]

NARRATIVE: CASE EVENT DATE: 20211201
